FAERS Safety Report 19389812 (Version 1)
Quarter: 2021Q2

REPORT INFORMATION
  Report Type: Spontaneous
  Country: US (occurrence: US)
  Receive Date: 20210608
  Receipt Date: 20210608
  Transmission Date: 20210717
  Serious: Yes (Other)
  Sender: FDA-Public Use
  Company Number: US-MYLANLABS-2021M1033113

PATIENT
  Age: 58 Year
  Sex: Male

DRUGS (4)
  1. OLANZAPINE. [Suspect]
     Active Substance: OLANZAPINE
     Indication: SCHIZOPHRENIA
     Dosage: 40 MILLIGRAM, QD
     Route: 048
  2. GUANFACINE. [Suspect]
     Active Substance: GUANFACINE
     Indication: SCHIZOPHRENIA
     Dosage: 2 MILLIGRAM, QD
     Route: 048
  3. OXCARBAZEPINE. [Suspect]
     Active Substance: OXCARBAZEPINE
     Indication: SCHIZOPHRENIA
     Dosage: INITIAL DOSE UNKNOWN; TITRATED UP TO 1200 MG/D
     Route: 048
  4. PIMAVANSERIN [Concomitant]
     Active Substance: PIMAVANSERIN
     Indication: SCHIZOPHRENIA
     Dosage: 34 MILLIGRAM, QD
     Route: 048

REACTIONS (2)
  - Off label use [Unknown]
  - Drug ineffective [Unknown]
